FAERS Safety Report 7901801-5 (Version None)
Quarter: 2011Q4

REPORT INFORMATION
  Report Type: 
  Country: None (occurrence: None)
  Receive Date: 20111108
  Receipt Date: 20111028
  Transmission Date: 20120403
  Serious: Yes (Other)
  Sender: FDA-Public Use
  Company Number: PHFR2011GB05424

PATIENT
  Sex: Male
  Weight: 114 kg

DRUGS (13)
  1. DIAZEPAM [Concomitant]
     Dosage: 4 MG/DAY
     Route: 065
     Dates: start: 20101101
  2. METFFORMIN HYDROCHLORIDE [Concomitant]
     Dosage: 500 MG/DAY
     Route: 065
  3. CLOZARIL [Suspect]
     Indication: SCHIZOPHRENIA
     Dosage: 350 MG/DAY
     Route: 048
     Dates: start: 20100622
  4. ZOPICLONE [Concomitant]
     Dosage: 15 MG, UNK
  5. ARIPIPRAZOLE [Concomitant]
     Dosage: 5 MG/DAY
     Route: 048
     Dates: start: 20110801
  6. SCOPODERM [Concomitant]
     Route: 062
  7. FLUOXETINE HCL [Concomitant]
     Dosage: 40 MG, MANE
     Route: 048
     Dates: start: 20101101
  8. DIAZEPAM [Concomitant]
     Dosage: 2 MG, UNK
     Route: 048
  9. PEGINTERFERON ALFA-2A [Suspect]
     Dosage: 180 MG, UNK
     Route: 058
  10. NALTREXONE HYDROCHLORIDE [Concomitant]
     Dosage: 50 MG, NOCTE
     Route: 048
     Dates: start: 20101101
  11. PEGINTERFERON ALFA-2A [Suspect]
     Indication: HEPATITIS C
     Dosage: 1 DF, QW
     Route: 058
     Dates: start: 20110715
  12. OMEPRAZOLE [Concomitant]
     Dosage: 40 MG, MANE
     Route: 065
  13. ZOPICLONE [Concomitant]
     Dosage: 7.5 MG, NOCTE
     Route: 048
     Dates: start: 20101101

REACTIONS (9)
  - HYPERHIDROSIS [None]
  - PLATELET COUNT DECREASED [None]
  - OBESITY [None]
  - NEUTROPHIL COUNT DECREASED [None]
  - OROPHARYNGEAL PAIN [None]
  - WHITE BLOOD CELL COUNT DECREASED [None]
  - MALAISE [None]
  - LEUKOPENIA [None]
  - NEUTROPENIA [None]
